FAERS Safety Report 11305890 (Version 1)
Quarter: 2015Q3

REPORT INFORMATION
  Report Type: Report from Study
  Country: BR (occurrence: BR)
  Receive Date: 20150723
  Receipt Date: 20150723
  Transmission Date: 20151125
  Serious: Yes (Other)
  Sender: FDA-Public Use
  Company Number: PHHY2015BR087027

PATIENT
  Sex: Female
  Weight: 61 kg

DRUGS (2)
  1. TEGRETOL [Suspect]
     Active Substance: CARBAMAZEPINE
     Indication: DEPRESSION
     Dosage: 1 DF (200 MG), QID (START: MORE THAN 20 YEARS AGO)
     Route: 065
  2. TEGRETOL [Suspect]
     Active Substance: CARBAMAZEPINE
     Dosage: 4 DF (400 MG), UNK
     Route: 065
     Dates: start: 1996, end: 2000

REACTIONS (5)
  - Retinal disorder [Unknown]
  - Eye degenerative disorder [Unknown]
  - Migraine [Unknown]
  - Bronchial hyperreactivity [Unknown]
  - Visual impairment [Unknown]

NARRATIVE: CASE EVENT DATE: 2012
